FAERS Safety Report 8983836 (Version 2)
Quarter: 2013Q4

REPORT INFORMATION
  Report Type: Report from Study
  Country: DE (occurrence: DE)
  Receive Date: 20121224
  Receipt Date: 20131003
  Transmission Date: 20140711
  Serious: Yes (Other)
  Sender: FDA-Public Use
  Company Number: DE-ROCHE-1169207

PATIENT
  Age: 68 Year
  Sex: Female
  Weight: 77.5 kg

DRUGS (5)
  1. BEVACIZUMAB [Suspect]
     Indication: OVARIAN CANCER
     Dosage: DATE OF LAST DOSE PRIOR TO SAE:20/NOV/2012
     Route: 042
     Dates: start: 20120605
  2. CARBOPLATIN [Suspect]
     Indication: OVARIAN CANCER
     Dosage: DATE OF LAST DOSE PRIOR TO SAE: 20/SEP/2012
     Route: 042
     Dates: start: 20120515
  3. PACLITAXEL [Suspect]
     Indication: OVARIAN CANCER
     Dosage: DATE OF LAST DOSE PRIOR TO SAE:20/SEP/2012
     Route: 042
     Dates: start: 20120515
  4. SPIRONOLACTON [Concomitant]
     Indication: HYPERTENSION
     Route: 048
  5. CANDESARTAN [Concomitant]
     Indication: HYPERTENSION
     Dosage: DAILY DOSE:16/125MG
     Route: 048

REACTIONS (1)
  - Humerus fracture [Recovered/Resolved]
